FAERS Safety Report 5315087-1 (Version None)
Quarter: 2007Q2

REPORT INFORMATION
  Report Type: 
  Country: None (occurrence: None)
  Receive Date: 20070502
  Receipt Date: 20070420
  Transmission Date: 20071010
  Serious: Yes (Death, Other)
  Sender: FDA-Public Use
  Company Number: US-PFIZER INC-2006124775

PATIENT
  Sex: Female

DRUGS (3)
  1. CELEBREX [Suspect]
     Route: 048
     Dates: start: 20031210, end: 20040801
  2. BEXTRA [Suspect]
  3. VIOXX [Suspect]
     Route: 048
     Dates: start: 20030118, end: 20030902

REACTIONS (2)
  - ACUTE MYOCARDIAL INFARCTION [None]
  - CEREBROVASCULAR ACCIDENT [None]
